FAERS Safety Report 19548168 (Version 1)
Quarter: 2021Q3

REPORT INFORMATION
  Report Type: Spontaneous
  Country: US (occurrence: US)
  Receive Date: 20210714
  Receipt Date: 20210714
  Transmission Date: 20211014
  Serious: Yes (Death)
  Sender: FDA-Public Use
  Company Number: None

PATIENT
  Sex: Female

DRUGS (21)
  1. ELIQUIS [Concomitant]
     Active Substance: APIXABAN
  2. LACTULOSE. [Concomitant]
     Active Substance: LACTULOSE
  3. OMEPRAZOLE. [Concomitant]
     Active Substance: OMEPRAZOLE
  4. LOPERAMIDE [Concomitant]
     Active Substance: LOPERAMIDE
  5. XGEVA [Concomitant]
     Active Substance: DENOSUMAB
  6. B6 [Concomitant]
     Active Substance: PYRIDOXINE HYDROCHLORIDE
  7. CALCIUM [Concomitant]
     Active Substance: CALCIUM
  8. ROSUVASTATIN. [Concomitant]
     Active Substance: ROSUVASTATIN
  9. TOPAMAX [Concomitant]
     Active Substance: TOPIRAMATE
  10. VERZENIO [Suspect]
     Active Substance: ABEMACICLIB
     Indication: BREAST CANCER FEMALE
     Route: 048
     Dates: start: 20210518
  11. MAXALT [Concomitant]
     Active Substance: RIZATRIPTAN BENZOATE
  12. MEMANTINE. [Concomitant]
     Active Substance: MEMANTINE
  13. PANTOPRAZOLE [Concomitant]
     Active Substance: PANTOPRAZOLE
  14. SENOKOT [Concomitant]
     Active Substance: SENNOSIDES
  15. ADVIL [Concomitant]
     Active Substance: IBUPROFEN
  16. TRAMADOL. [Concomitant]
     Active Substance: TRAMADOL
  17. TOPIRAMATE. [Concomitant]
     Active Substance: TOPIRAMATE
  18. AFINITOR [Concomitant]
     Active Substance: EVEROLIMUS
  19. ONDANSETRON [Concomitant]
     Active Substance: ONDANSETRON
  20. OXYCODONE [Concomitant]
     Active Substance: OXYCODONE
  21. SPIRONOLACT [Concomitant]
     Active Substance: SPIRONOLACTONE

REACTIONS (1)
  - Death [None]
